FAERS Safety Report 24230898 (Version 1)
Quarter: 2024Q3

REPORT INFORMATION
  Report Type: Other
  Country: PT (occurrence: PT)
  Receive Date: 20240821
  Receipt Date: 20240821
  Transmission Date: 20241017
  Serious: Yes (Hospitalization, Other)
  Sender: DEXCEL
  Company Number: PT-DEXPHARM-2024-2865

PATIENT
  Age: 84 Year
  Sex: Female

DRUGS (4)
  1. BISMUTH SUBCITRATE [Suspect]
     Active Substance: BISMUTH SUBCITRATE
     Indication: Helicobacter infection
  2. METRONIDAZOLE [Interacting]
     Active Substance: METRONIDAZOLE
     Indication: Helicobacter infection
  3. OMEPRAZOLE [Interacting]
     Active Substance: OMEPRAZOLE
     Indication: Helicobacter infection
  4. TETRACYCLINE [Interacting]
     Active Substance: TETRACYCLINE
     Indication: Helicobacter infection

REACTIONS (2)
  - Pseudomembranous colitis [Recovered/Resolved]
  - Drug interaction [Recovered/Resolved]
